FAERS Safety Report 10238920 (Version 1)
Quarter: 2014Q2

REPORT INFORMATION
  Report Type: Spontaneous
  Country: FR (occurrence: FR)
  Receive Date: 20140616
  Receipt Date: 20140616
  Transmission Date: 20141212
  Serious: Yes (Other)
  Sender: FDA-Public Use
  Company Number: FR-PFIZER INC-2014159170

PATIENT
  Age: 17 Year
  Sex: Female

DRUGS (4)
  1. IBUPROFEN [Suspect]
     Indication: PAIN
     Dosage: 400 MG, 4X/DAY
     Dates: start: 201302
  2. IBUPROFEN [Suspect]
     Dosage: 400 MG, 8 TIMES A DAY
     Dates: start: 201304
  3. IBUPROFEN [Suspect]
     Dosage: 400 MG, 4-5 TIMES A DAY
     Dates: start: 201306
  4. IBUPROFEN [Suspect]
     Dosage: 400 MG, 4X/DAY

REACTIONS (2)
  - Overdose [Unknown]
  - Drug dependence [Unknown]
